FAERS Safety Report 16688956 (Version 1)
Quarter: 2019Q3

REPORT INFORMATION
  Report Type: Report from Study
  Country: CA (occurrence: CA)
  Receive Date: 20190809
  Receipt Date: 20190809
  Transmission Date: 20191004
  Serious: Yes (Hospitalization, Other)
  Sender: FDA-Public Use
  Company Number: CA-IMPAX LABORATORIES, LLC-2019-IPXL-01449

PATIENT
  Age: 8 Year
  Sex: Female
  Weight: 20 kg

DRUGS (2)
  1. PRAZIQUANTEL. [Concomitant]
     Active Substance: PRAZIQUANTEL
     Indication: PRODUCT USED FOR UNKNOWN INDICATION
     Dosage: UNK
     Route: 065
     Dates: start: 20190709
  2. ALBENZA [Suspect]
     Active Substance: ALBENDAZOLE
     Indication: ECHINOCOCCIASIS
     Dosage: 200 MILLIGRAM, BID
     Route: 048
     Dates: start: 20190701

REACTIONS (6)
  - Biliary fistula [Unknown]
  - Pruritus [Unknown]
  - Pyrexia [Recovering/Resolving]
  - Rash [Recovered/Resolved]
  - Superinfection bacterial [Unknown]
  - Cyst rupture [Unknown]
